FAERS Safety Report 11940374 (Version 1)
Quarter: 2016Q1

REPORT INFORMATION
  Report Type: Spontaneous
  Country: US (occurrence: US)
  Receive Date: 20160122
  Receipt Date: 20160122
  Transmission Date: 20160526
  Serious: No
  Sender: FDA-Public Use
  Company Number: US-DYAX CORP.-2015DX000152

PATIENT
  Age: 66 Year
  Sex: Female
  Weight: 74.46 kg

DRUGS (1)
  1. KALBITOR [Suspect]
     Active Substance: ECALLANTIDE
     Indication: HEREDITARY ANGIOEDEMA
     Route: 058
     Dates: start: 201311

REACTIONS (2)
  - Off label use [Unknown]
  - Immune system disorder [Unknown]

NARRATIVE: CASE EVENT DATE: 201311
